FAERS Safety Report 4587268-6 (Version None)
Quarter: 2005Q1

REPORT INFORMATION
  Report Type: 
  Country: None (occurrence: None)
  Receive Date: 20050218
  Receipt Date: 20050216
  Transmission Date: 20050727
  Serious: Yes (Other)
  Sender: FDA-Public Use
  Company Number: DE-GLAXOSMITHKLINE-D0045917A

PATIENT
  Age: 62 Year
  Sex: Female
  Weight: 62 kg

DRUGS (1)
  1. ELMENDOS [Suspect]
     Indication: BIPOLAR DISORDER
     Route: 048
     Dates: start: 20031219

REACTIONS (3)
  - ECZEMA [None]
  - PSORIASIS [None]
  - SKIN DISORDER [None]
